FAERS Safety Report 4418480-4 (Version None)
Quarter: 2004Q3

REPORT INFORMATION
  Report Type: 
  Country: None (occurrence: None)
  Receive Date: 20040809
  Receipt Date: 20040510
  Transmission Date: 20050211
  Serious: No
  Sender: FDA-Public Use
  Company Number: US-GLAXOSMITHKLINE-A0510192A

PATIENT
  Age: 33 Year
  Sex: Female

DRUGS (1)
  1. PAXIL CR [Suspect]
     Indication: POSTPARTUM DEPRESSION
     Dosage: 37.5MG PER DAY
     Route: 048
     Dates: start: 20020101

REACTIONS (2)
  - DRUG WITHDRAWAL SYNDROME [None]
  - PARAESTHESIA [None]
